FAERS Safety Report 6127256-1 (Version None)
Quarter: 2009Q1

REPORT INFORMATION
  Report Type: 
  Country: None (occurrence: None)
  Receive Date: 20090318
  Receipt Date: 20090305
  Transmission Date: 20090719
  Serious: Yes (Death)
  Sender: FDA-Public Use
  Company Number: 02100-JPN-07-0242

PATIENT
  Age: 85 Year
  Sex: Female

DRUGS (7)
  1. PLETAL [Suspect]
     Indication: CEREBRAL INFARCTION
     Dosage: 100 MB, BID
     Route: 048
     Dates: start: 20060602, end: 20060615
  2. PLETAL [Suspect]
     Indication: CEREBRAL INFARCTION
     Dosage: 100 MB, BID
     Route: 048
     Dates: start: 20060616, end: 20061225
  3. PLETAL [Suspect]
     Indication: CEREBRAL INFARCTION
     Dosage: 200 MG, DAILY DOSE
     Route: 048
     Dates: start: 20061226, end: 20070404
  4. ASPIRIN ENTERIC COATED (ASPIRIN ENTERIC COATED) [Concomitant]
  5. CANDESARTAN CILEXIL (CANDESARTAN CILEXIL) [Concomitant]
  6. CILNIDIPINE (CILNIDIPINE) [Concomitant]
  7. SIMVASTATIN (SIMIVASTATIN) [Concomitant]

REACTIONS (1)
  - COMPLETED SUICIDE [None]
